FAERS Safety Report 8987760 (Version 3)
Quarter: 2013Q1

REPORT INFORMATION
  Report Type: Report from Study
  Country: TW (occurrence: TW)
  Receive Date: 20121227
  Receipt Date: 20130116
  Transmission Date: 20140127
  Serious: Yes (Hospitalization)
  Sender: FDA-Public Use
  Company Number: TW-PFIZER INC-2012320475

PATIENT
  Age: 51 Year
  Sex: Female
  Weight: 75.6 kg

DRUGS (7)
  1. TOFACITINIB CITRATE [Suspect]
     Indication: RHEUMATOID ARTHRITIS
     Dosage: 5 MG, BID
     Route: 048
     Dates: start: 20111123, end: 20121212
  2. METHOTREXATE [Concomitant]
     Indication: RHEUMATOID ARTHRITIS
     Dosage: 15 MG, EVERY WEEK
     Route: 048
     Dates: start: 20081231
  3. FOLIC ACID [Concomitant]
     Indication: PROPHYLAXIS
     Dosage: 5 MG, QD
     Route: 048
     Dates: start: 20091028
  4. LOSARTAN POTASSIUM W/HYDROCHLOROTHIAZIDE [Concomitant]
     Indication: HYPERTENSION
     Dosage: 100/12.5 MG, QD
     Route: 048
     Dates: start: 20110223
  5. PREDNISOLONE [Concomitant]
     Indication: RHEUMATOID ARTHRITIS
     Dosage: 5 MG, BID
     Route: 048
     Dates: start: 20121109
  6. LEDERSCON [Concomitant]
     Indication: PROPHYLAXIS
     Dosage: 1 TABLET, BID
     Route: 048
     Dates: start: 20080716
  7. CELECOXIB [Concomitant]
     Indication: RHEUMATOID ARTHRITIS
     Dosage: 200 MG, BID
     Route: 048
     Dates: start: 20121109, end: 20121214

REACTIONS (1)
  - Renal cell carcinoma [Recovered/Resolved]
